FAERS Safety Report 26117967 (Version 1)
Quarter: 2025Q4

REPORT INFORMATION
  Report Type: Spontaneous
  Country: EU (occurrence: EU)
  Receive Date: 20251203
  Receipt Date: 20251203
  Transmission Date: 20260119
  Serious: Yes (Hospitalization)
  Sender: PFIZER
  Company Number: None

PATIENT
  Age: 39 Year
  Sex: Male
  Weight: 76 kg

DRUGS (8)
  1. LINEZOLID [Suspect]
     Active Substance: LINEZOLID
     Indication: Peritonsillar abscess
     Dosage: 600 MG, 2X/DAY (EVERY 12 HOURS)
     Route: 042
     Dates: start: 20250903, end: 20250924
  2. AMOXICILLIN\CLAVULANATE POTASSIUM [Suspect]
     Active Substance: AMOXICILLIN\CLAVULANATE POTASSIUM
     Indication: Peritonsillar abscess
     Dosage: 2 DF, 3X/DAY (EVERY 8 HOURS)
     Route: 042
     Dates: start: 20250904, end: 20250924
  3. AMOXICILLIN\CLAVULANATE POTASSIUM [Suspect]
     Active Substance: AMOXICILLIN\CLAVULANATE POTASSIUM
     Indication: Mediastinitis
  4. LEVOFLOXACIN [Suspect]
     Active Substance: LEVOFLOXACIN
     Indication: Peritonsillar abscess
     Dosage: 500 MG, 1X/DAY (EVERY 24 HOURS)
     Route: 042
     Dates: start: 20250904, end: 20250924
  5. LEVOFLOXACIN [Suspect]
     Active Substance: LEVOFLOXACIN
     Indication: Mediastinitis
  6. ERYTHROMYCIN [Suspect]
     Active Substance: ERYTHROMYCIN
     Indication: Peritonsillar abscess
     Dosage: 250 MG, 3X/DAY (EVERY 8 HOURS)
     Route: 042
     Dates: start: 20250903, end: 20251006
  7. ERYTHROMYCIN [Suspect]
     Active Substance: ERYTHROMYCIN
     Indication: Mediastinitis
  8. VALPROATE SODIUM [Suspect]
     Active Substance: VALPROATE SODIUM
     Indication: Epilepsy
     Dosage: 2400 MG, 1X/DAY (CONTINUOUS INFUSION OVER 24 HOURS)
     Route: 042
     Dates: start: 20250922, end: 20251006

REACTIONS (1)
  - Hepatitis cholestatic [Recovered/Resolved]

NARRATIVE: CASE EVENT DATE: 20251003
